FAERS Safety Report 18560558 (Version 2)
Quarter: 2020Q4

REPORT INFORMATION
  Report Type: Spontaneous
  Country: US (occurrence: US)
  Receive Date: 20201130
  Receipt Date: 20201217
  Transmission Date: 20210114
  Serious: Yes (Other)
  Sender: FDA-Public Use
  Company Number: US-PURDUE-USA-2020-0175420

PATIENT
  Sex: Male

DRUGS (7)
  1. OXYCODONE/ ACETAMINOPHEN TABLETS [Suspect]
     Active Substance: ACETAMINOPHEN\OXYCODONE HYDROCHLORIDE
     Indication: PRODUCT USED FOR UNKNOWN INDICATION
     Dosage: UNKNOWN
     Route: 048
  2. HYDROMORPHONE TABLETS [Suspect]
     Active Substance: HYDROMORPHONE
     Indication: BACK PAIN
     Dosage: UNK
     Route: 048
     Dates: start: 2014
  3. PERCOCET                           /00446701/ [Suspect]
     Active Substance: ACETAMINOPHEN\OXYCODONE HYDROCHLORIDE\OXYCODONE TEREPHTHALATE
     Indication: BACK PAIN
     Dosage: UNK
     Route: 065
  4. HYDROCODONE BITARTRATE AND ACETAMINOPHEN [Suspect]
     Active Substance: ACETAMINOPHEN\HYDROCODONE BITARTRATE
     Indication: PRODUCT USED FOR UNKNOWN INDICATION
     Dosage: UNKNOWN
     Route: 048
  5. DILAUDID [Suspect]
     Active Substance: HYDROMORPHONE HYDROCHLORIDE
     Dosage: 6 MG, SEE TEXT
     Route: 048
     Dates: start: 2014
  6. DILAUDID [Suspect]
     Active Substance: HYDROMORPHONE HYDROCHLORIDE
     Indication: BACK PAIN
     Dosage: 8 MG, SEE TEXT
     Route: 048
  7. FENTANYL. [Suspect]
     Active Substance: FENTANYL
     Indication: BACK PAIN
     Dosage: UNK
     Route: 065

REACTIONS (20)
  - Gait disturbance [Unknown]
  - Anxiety [Unknown]
  - Seizure [Unknown]
  - Tooth injury [Unknown]
  - Amnesia [Unknown]
  - Fear [Unknown]
  - Suicidal ideation [Unknown]
  - Drug dependence [Unknown]
  - Tremor [Unknown]
  - Liver disorder [Unknown]
  - Overdose [Unknown]
  - Paranoia [Unknown]
  - Pain [Unknown]
  - Lung neoplasm malignant [Unknown]
  - Drug withdrawal syndrome [Unknown]
  - Substance use disorder [Unknown]
  - Hepatitis C [Unknown]
  - Blindness [Unknown]
  - Depression [Unknown]
  - Emotional distress [Unknown]
